FAERS Safety Report 11919167 (Version 1)
Quarter: 2016Q1

REPORT INFORMATION
  Report Type: Spontaneous
  Country: US (occurrence: None)
  Receive Date: 20160114
  Receipt Date: 20160114
  Transmission Date: 20160526
  Serious: Yes (Other)
  Sender: FDA-Public Use
  Company Number: None

PATIENT
  Age: 65 Year
  Sex: Male
  Weight: 70.31 kg

DRUGS (5)
  1. GLUCOSEAMINE WITH MSM [Concomitant]
  2. SIMVASTATIN 40MG INTERNATIONAL LABORATORIES, INC. [Suspect]
     Active Substance: SIMVASTATIN
     Indication: BLOOD CHOLESTEROL INCREASED
     Route: 048
     Dates: start: 20121212, end: 20151210
  3. CALCIUM CITRATE [Concomitant]
     Active Substance: CALCIUM CITRATE
  4. COENZYME Q10 [Concomitant]
     Active Substance: UBIDECARENONE
  5. NAPROXEN SODIUM. [Concomitant]
     Active Substance: NAPROXEN SODIUM

REACTIONS (4)
  - Inflammation [None]
  - Myalgia [None]
  - Fatigue [None]
  - Myopathy [None]

NARRATIVE: CASE EVENT DATE: 20151210
